FAERS Safety Report 6442415-6 (Version None)
Quarter: 2009Q4

REPORT INFORMATION
  Report Type: 
  Country: None (occurrence: None)
  Receive Date: 20091112
  Receipt Date: 20091103
  Transmission Date: 20100525
  Serious: Yes (Hospitalization, Other)
  Sender: FDA-Public Use
  Company Number: 2009SP033974

PATIENT
  Sex: Female

DRUGS (9)
  1. MIRTAZAPINE [Suspect]
  2. RISPERDAL [Suspect]
     Indication: DEMENTIA
     Dosage: 500 MCG; QD; PO
     Route: 048
  3. RISPERDAL [Suspect]
     Indication: DEPRESSION
     Dosage: 500 MCG; QD; PO
     Route: 048
  4. ASPIRIN [Concomitant]
  5. FOLIC ACID [Concomitant]
  6. IBUPROFEN [Concomitant]
  7. NULYTELY [Concomitant]
  8. PARACETAMOL [Concomitant]
  9. SIMVASTATIN [Concomitant]

REACTIONS (2)
  - DRUG INTERACTION [None]
  - ILEUS [None]
